FAERS Safety Report 8484443-5 (Version None)
Quarter: 2012Q3

REPORT INFORMATION
  Report Type: 
  Country: None (occurrence: None)
  Receive Date: 20120703
  Receipt Date: 20120627
  Transmission Date: 20120928
  Serious: Yes (Hospitalization)
  Sender: FDA-Public Use
  Company Number: US-ACTELION-A-US2012-67950

PATIENT

DRUGS (5)
  1. ASPIRIN [Concomitant]
  2. ADCIRCA [Concomitant]
  3. PLAVIX [Concomitant]
  4. REMODULIN [Suspect]
  5. TRACLEER [Suspect]
     Indication: PULMONARY ARTERIAL HYPERTENSION
     Dosage: UNK
     Route: 048

REACTIONS (1)
  - DEVICE RELATED INFECTION [None]
